FAERS Safety Report 7557773-9 (Version None)
Quarter: 2011Q2

REPORT INFORMATION
  Report Type: 
  Country: None (occurrence: None)
  Receive Date: 20110620
  Receipt Date: 20110614
  Transmission Date: 20111010
  Serious: Yes (Life-Threatening, Hospitalization, Other)
  Sender: FDA-Public Use
  Company Number: DE-ABBOTT-10P-062-0683743-00

PATIENT
  Sex: Female
  Weight: 100 kg

DRUGS (25)
  1. SPIRONOLACTONE [Concomitant]
     Indication: PRODUCT USED FOR UNKNOWN INDICATION
     Dates: start: 20090617
  2. ASPIRIN [Concomitant]
     Indication: PRODUCT USED FOR UNKNOWN INDICATION
     Dosage: DAILY
     Dates: start: 20071014
  3. VANCOMYCIN [Concomitant]
     Indication: STAPHYLOCOCCAL INFECTION
     Dosage: PER OS AND INTRAVENOUS
     Dates: start: 20110310
  4. DREISAVIT [Concomitant]
     Indication: PRODUCT USED FOR UNKNOWN INDICATION
  5. VITAMIN B-12 [Concomitant]
     Indication: PRODUCT USED FOR UNKNOWN INDICATION
  6. ZEMPLAR [Suspect]
     Indication: HYPERPARATHYROIDISM SECONDARY
     Dates: start: 20091218
  7. NOVORAPID [Concomitant]
     Indication: PRODUCT USED FOR UNKNOWN INDICATION
     Dates: start: 20070101
  8. VANCOMYCIN [Concomitant]
     Indication: CLOSTRIDIAL INFECTION
  9. EPOETIN ALFA [Concomitant]
     Indication: PRODUCT USED FOR UNKNOWN INDICATION
     Dosage: PREFILLED SYRINGE
  10. BYETTA [Concomitant]
     Indication: PRODUCT USED FOR UNKNOWN INDICATION
     Route: 058
  11. LYRICA [Concomitant]
     Indication: PRODUCT USED FOR UNKNOWN INDICATION
     Dates: start: 20071114
  12. DREISPUIT [Concomitant]
     Indication: PRODUCT USED FOR UNKNOWN INDICATION
     Dates: start: 20071114
  13. PREGABALIN [Concomitant]
     Indication: PRODUCT USED FOR UNKNOWN INDICATION
  14. BISOPROLOL FUMARATE [Concomitant]
  15. BISOPROLOL FUMARATE [Concomitant]
     Indication: PRODUCT USED FOR UNKNOWN INDICATION
     Dates: start: 20090424
  16. OSVAREN [Concomitant]
     Indication: PRODUCT USED FOR UNKNOWN INDICATION
     Dates: start: 20080716
  17. LEVIMIR INSULIN [Concomitant]
     Indication: PRODUCT USED FOR UNKNOWN INDICATION
     Route: 058
     Dates: start: 20070101
  18. ZINK IT [Concomitant]
     Indication: PRODUCT USED FOR UNKNOWN INDICATION
     Dates: start: 20091203
  19. CALCIUMACETAT [Concomitant]
     Indication: PRODUCT USED FOR UNKNOWN INDICATION
  20. NOVALGIN [Concomitant]
     Indication: PRODUCT USED FOR UNKNOWN INDICATION
     Dates: start: 20090617
  21. MOVIPREP [Concomitant]
     Indication: PRODUCT USED FOR UNKNOWN INDICATION
     Dates: start: 20071114
  22. FERRLECIT [Concomitant]
     Indication: PRODUCT USED FOR UNKNOWN INDICATION
     Dosage: 1 AMPOULE PAUSED
     Dates: start: 20090306
  23. TORSEMIDE [Concomitant]
     Indication: PRODUCT USED FOR UNKNOWN INDICATION
     Dates: start: 20080402
  24. DEKRISTOL [Concomitant]
     Indication: PRODUCT USED FOR UNKNOWN INDICATION
     Dates: start: 20090304
  25. METAMIZOL [Concomitant]
     Indication: PRODUCT USED FOR UNKNOWN INDICATION
     Dosage: IF REQUIRED

REACTIONS (9)
  - GANGRENE [None]
  - COUGH [None]
  - SEPSIS [None]
  - DIABETIC VASCULAR DISORDER [None]
  - BRONCHOPNEUMONIA [None]
  - FOOT AMPUTATION [None]
  - PYREXIA [None]
  - OSTEOMYELITIS [None]
  - STAPHYLOCOCCAL INFECTION [None]
